FAERS Safety Report 21755419 (Version 1)
Quarter: 2022Q4

REPORT INFORMATION
  Report Type: Spontaneous
  Country: None (occurrence: US)
  Receive Date: 20221220
  Receipt Date: 20221220
  Transmission Date: 20230113
  Serious: Yes (Death)
  Sender: FDA-Public Use
  Company Number: US-Bio Products Laboratory Ltd-2136009

PATIENT
  Age: 9 Year
  Sex: Female
  Weight: 18.182 kg

DRUGS (1)
  1. COAGADEX [Suspect]
     Active Substance: COAGULATION FACTOR X HUMAN
     Indication: Factor X deficiency
     Route: 042
     Dates: start: 20170208

REACTIONS (1)
  - Death [Fatal]
